FAERS Safety Report 9136346 (Version 1)
Quarter: 2013Q1

REPORT INFORMATION
  Report Type: Spontaneous
  Country: US (occurrence: US)
  Receive Date: 20130304
  Receipt Date: 20130304
  Transmission Date: 20140127
  Serious: No
  Sender: FDA-Public Use
  Company Number: US-ABBOTT-12P-163-0924713-00

PATIENT
  Sex: Male
  Weight: 83.99 kg

DRUGS (6)
  1. ANDROGEL 1% [Suspect]
     Indication: BLOOD TESTOSTERONE DECREASED
     Dosage: 2 PUMPS DAILY
     Route: 061
  2. ANDROGEL 1% [Suspect]
     Dosage: 10 PUMPS DAILY
     Route: 061
  3. ANDROGEL 1% [Suspect]
     Dosage: UNKNOWN INCREASED DOSES AFTER TESTOSTERONE TESTING, COULDN^T REMEMBER DATES.
     Route: 061
  4. MORPHINE SULFATE [Concomitant]
     Indication: BACK PAIN
     Route: 048
  5. VERAPAMIL [Concomitant]
     Indication: HYPERTENSION
     Route: 048
  6. SOMA [Concomitant]
     Indication: MUSCLE RELAXANT THERAPY

REACTIONS (2)
  - Application site pain [Not Recovered/Not Resolved]
  - Blood testosterone abnormal [Not Recovered/Not Resolved]
